FAERS Safety Report 7489015-7 (Version None)
Quarter: 2011Q2

REPORT INFORMATION
  Report Type: 
  Country: None (occurrence: None)
  Receive Date: 20110518
  Receipt Date: 20110504
  Transmission Date: 20111010
  Serious: Yes (Hospitalization)
  Sender: FDA-Public Use
  Company Number: CA-JNJFOC-20110502923

PATIENT
  Sex: Female
  Weight: 49 kg

DRUGS (1)
  1. REMICADE [Suspect]
     Indication: COLITIS ULCERATIVE
     Route: 042
     Dates: start: 20100304

REACTIONS (3)
  - HERPES ZOSTER [None]
  - FUNGAL INFECTION [None]
  - PNEUMONIA [None]
